FAERS Safety Report 17791952 (Version 5)
Quarter: 2021Q3

REPORT INFORMATION
  Report Type: Spontaneous
  Country: US (occurrence: US)
  Receive Date: 20200515
  Receipt Date: 20210929
  Transmission Date: 20211014
  Serious: No
  Sender: FDA-Public Use
  Company Number: US-PFIZER INC-2020194715

PATIENT
  Age: 62 Year
  Sex: Female

DRUGS (1)
  1. PREGABALIN. [Suspect]
     Active Substance: PREGABALIN
     Indication: DIABETIC GASTROPARESIS
     Dosage: 600 MG, DAILY (300 MG QTY 60 DAY SUPPLY 30)

REACTIONS (8)
  - Drug ineffective for unapproved indication [Unknown]
  - Feeling abnormal [Unknown]
  - Off label use [Unknown]
  - Insomnia [Unknown]
  - Malaise [Unknown]
  - Fear [Unknown]
  - Feeding disorder [Unknown]
  - Vomiting [Unknown]
